FAERS Safety Report 23866861 (Version 1)
Quarter: 2024Q2

REPORT INFORMATION
  Report Type: Spontaneous
  Country: US (occurrence: US)
  Receive Date: 20240517
  Receipt Date: 20240517
  Transmission Date: 20240715
  Serious: No
  Sender: FDA-Public Use
  Company Number: US-Kiniksa Pharmaceuticals Ltd.-2024KPU000157

PATIENT
  Age: 65 Year
  Sex: Female

DRUGS (1)
  1. ARCALYST [Suspect]
     Active Substance: RILONACEPT
     Indication: Pericarditis
     Route: 058
     Dates: start: 20221002

REACTIONS (7)
  - Condition aggravated [Not Recovered/Not Resolved]
  - Renal disorder [Not Recovered/Not Resolved]
  - Back pain [Not Recovered/Not Resolved]
  - Hypertension [Not Recovered/Not Resolved]
  - COVID-19 [Unknown]
  - Pain [Unknown]
  - Haematuria [Unknown]

NARRATIVE: CASE EVENT DATE: 20230501
